FAERS Safety Report 9163669 (Version 1)
Quarter: 2013Q1

REPORT INFORMATION
  Report Type: Spontaneous
  Country: US (occurrence: US)
  Receive Date: 20130314
  Receipt Date: 20130314
  Transmission Date: 20140127
  Serious: Yes (Other)
  Sender: FDA-Public Use
  Company Number: PHEH2013US004779

PATIENT
  Sex: Male

DRUGS (4)
  1. METHYLPHENIDATE [Suspect]
     Indication: ATTENTION DEFICIT/HYPERACTIVITY DISORDER
     Dosage: UNK UKN, QID
     Route: 048
  2. RITALIN [Concomitant]
     Dosage: UNK, QID
  3. WELLBUTRIN [Concomitant]
     Dosage: UNK UKN, UNK
  4. ZYPREXA [Concomitant]
     Dosage: UNK UKN, UNK

REACTIONS (2)
  - Confusional state [Recovered/Resolved]
  - Depression [Recovered/Resolved]
